FAERS Safety Report 17113174 (Version 9)
Quarter: 2021Q2

REPORT INFORMATION
  Report Type: Spontaneous
  Country: DE (occurrence: DE)
  Receive Date: 20191204
  Receipt Date: 20210602
  Transmission Date: 20210716
  Serious: Yes (Death, Life-Threatening, Hospitalization, Other)
  Sender: FDA-Public Use
  Company Number: DE-CELLTRION INC.-2019DE027035

PATIENT

DRUGS (38)
  1. PREDNISOLONE. [Suspect]
     Active Substance: PREDNISOLONE
     Indication: ENCEPHALITIS
     Dosage: 5 MG, TAPERING FASHION
     Route: 048
  2. DARATUMUMAB [Suspect]
     Active Substance: DARATUMUMAB
     Indication: ENCEPHALITIS
     Dosage: 16 MG/KG INFUSION, FOR A TOTAL OF 13 CYCLES
     Route: 042
  3. DARATUMUMAB [Suspect]
     Active Substance: DARATUMUMAB
     Indication: ENCEPHALITIS AUTOIMMUNE
     Dosage: 16 MG/KG, EVERY 2 WEEKS (REMAINING FIVE CYCLES)
     Route: 041
  4. IMMUNE GLOBULIN (IMMUNOGLOBULINS NOS) [Suspect]
     Active Substance: IMMUNE GLOBULIN NOS
     Indication: ENCEPHALITIS AUTOIMMUNE
     Dosage: DOSE: 2G/KG
     Route: 042
  5. PLASMA [Concomitant]
     Active Substance: HUMAN PLASMA
     Dosage: 8X PLASMA EXCHANGE
     Route: 065
  6. METHYLPREDNISOLONE. [Suspect]
     Active Substance: METHYLPREDNISOLONE
     Indication: ENCEPHALITIS AUTOIMMUNE
     Dosage: 5X500MG
     Route: 065
  7. BORTEZOMIB. [Suspect]
     Active Substance: BORTEZOMIB
     Indication: IMMUNOSUPPRESSION
     Dosage: 1?1.3 MG/M2
     Route: 065
  8. DARATUMUMAB [Suspect]
     Active Substance: DARATUMUMAB
     Dosage: 8 CYCES
     Route: 041
  9. DARATUMUMAB [Suspect]
     Active Substance: DARATUMUMAB
     Dosage: 1?8 CYCLES
     Route: 042
  10. DARZALEX [Suspect]
     Active Substance: DARATUMUMAB
     Dosage: UNK
     Route: 065
  11. BORTEZOMIB. [Suspect]
     Active Substance: BORTEZOMIB
     Indication: ENCEPHALITIS
     Dosage: 3 CYCLES OF BORTEZOMIB 11.3 MG/M2
     Route: 065
  12. DARATUMUMAB [Suspect]
     Active Substance: DARATUMUMAB
     Dosage: 9?13 CYCLES, EVERY 2 WEEK
     Route: 042
  13. RITUXIMAB (UNKNOWN) [Suspect]
     Active Substance: RITUXIMAB
     Indication: ENCEPHALITIS
     Dosage: 1 G (BETWEEN 2 AND 3 MONTHS AFTER DISEASE EXACERBATION)
     Route: 065
  14. VELCADE [Suspect]
     Active Substance: BORTEZOMIB
     Dosage: UNK
     Route: 065
  15. ACICLOVIR [Concomitant]
     Active Substance: ACYCLOVIR
     Indication: INFECTION PROPHYLAXIS
     Dosage: 200 MG, QD
     Route: 065
  16. PLASMA [Concomitant]
     Active Substance: HUMAN PLASMA
     Indication: ENCEPHALITIS AUTOIMMUNE
     Dosage: 12X PLASMA EXCHANGE
     Route: 065
  17. PLASMA [Concomitant]
     Active Substance: HUMAN PLASMA
     Dosage: 25X PLASMA EXCHANGE
     Route: 065
  18. VELCADE [Suspect]
     Active Substance: BORTEZOMIB
     Indication: ENCEPHALITIS
     Dosage: 1?1.3 MG/M2
     Route: 065
  19. DARZALEX [Suspect]
     Active Substance: DARATUMUMAB
     Indication: PLASMA CELL MYELOMA
     Dosage: 9?13 CYCLES
     Route: 042
  20. METHYLPREDNISOLONE. [Suspect]
     Active Substance: METHYLPREDNISOLONE
     Indication: ENCEPHALITIS
     Dosage: 5X1G
     Route: 065
  21. DARATUMUMAB [Suspect]
     Active Substance: DARATUMUMAB
     Indication: IMMUNOSUPPRESSION
     Dosage: 16 MG/KG, 1/WEEK (8 CYCLES)
     Route: 041
  22. DARATUMUMAB [Suspect]
     Active Substance: DARATUMUMAB
     Dosage: REMAINING FIVE CYCLES
     Route: 041
  23. IMMUNE GLOBULIN (IMMUNOGLOBULINS NOS) [Suspect]
     Active Substance: IMMUNE GLOBULIN NOS
     Indication: ENCEPHALITIS
     Dosage: 2 G/KG
     Route: 042
  24. COTRIMOXAZOLE [Concomitant]
     Active Substance: SULFAMETHOXAZOLE\TRIMETHOPRIM
     Indication: INFECTION PROPHYLAXIS
     Dosage: 2880 MG, EVERY WEEK
  25. COTRIMOXAZOLE [Concomitant]
     Active Substance: SULFAMETHOXAZOLE\TRIMETHOPRIM
     Dosage: 960 MG, THREE TIMES A WEEK
     Route: 065
  26. COTRIMOXAZOLE [Concomitant]
     Active Substance: SULFAMETHOXAZOLE\TRIMETHOPRIM
     Dosage: 960 MG THRICE WEEKLY
     Route: 065
  27. PLASMA [Concomitant]
     Active Substance: HUMAN PLASMA
     Dosage: 6X PLASMA EXCHANGE
     Route: 065
  28. PREDNISOLONE. [Suspect]
     Active Substance: PREDNISOLONE
     Indication: ENCEPHALITIS AUTOIMMUNE
     Dosage: 5 MG, QD (TAPERING?REGIMEN)
     Route: 048
  29. BORTEZOMIB. [Suspect]
     Active Substance: BORTEZOMIB
     Indication: ENCEPHALITIS AUTOIMMUNE
     Dosage: THREE CYCLES AT A DOSE OF 1?1.3 MG/M2
     Route: 065
  30. COTRIMOXAZOLE [Concomitant]
     Active Substance: SULFAMETHOXAZOLE\TRIMETHOPRIM
     Dosage: THREE TIMES A WEEK
     Route: 065
  31. RITUXIMAB (UNKNOWN) [Suspect]
     Active Substance: RITUXIMAB
     Indication: ENCEPHALITIS AUTOIMMUNE
     Dosage: 1 G (7 MONTHS AFTER DISEASE EXACERBATION)
     Route: 065
  32. DARZALEX [Suspect]
     Active Substance: DARATUMUMAB
     Indication: ENCEPHALITIS
     Dosage: 1?8 CYCLES
     Route: 042
  33. RITUXIMAB (UNKNOWN) [Suspect]
     Active Substance: RITUXIMAB
     Indication: PLASMA CELL MYELOMA
     Dosage: 1 G (4 MONTHS AFTER DISEASE EXACERBATION)
     Route: 065
  34. RITUXIMAB (UNKNOWN) [Suspect]
     Active Substance: RITUXIMAB
     Indication: IMMUNOSUPPRESSION
     Dosage: 1 G (12 MONTHS AFTER DISEASE EXACERBATION)
     Route: 065
  35. METHYLPREDNISOLONE. [Suspect]
     Active Substance: METHYLPREDNISOLONE
     Indication: IMMUNOSUPPRESSION
     Dosage: UNK
     Route: 065
  36. PREDNISOLONE. [Suspect]
     Active Substance: PREDNISOLONE
     Dosage: RECEIVED FOR 2 AND HALF YEARS
     Route: 048
  37. ACICLOVIR [Concomitant]
     Active Substance: ACYCLOVIR
     Dosage: 200 MILLIGRAM DAILY;
     Route: 065
  38. ACICLOVIR [Concomitant]
     Active Substance: ACYCLOVIR
     Dosage: 200 MG/DAYS

REACTIONS (21)
  - Bacterial infection [Fatal]
  - Urinary tract infection [Fatal]
  - Rebound effect [Recovering/Resolving]
  - Cerebellar ataxia [Recovering/Resolving]
  - Septic shock [Recovered/Resolved]
  - Aggression [Unknown]
  - Cognitive disorder [Recovering/Resolving]
  - Neuromyotonia [Recovering/Resolving]
  - Product use in unapproved indication [Fatal]
  - Condition aggravated [Recovering/Resolving]
  - Cellulitis [Recovered/Resolved]
  - Off label use [Fatal]
  - Infection [Unknown]
  - Hand fracture [Unknown]
  - Bacterial sepsis [Fatal]
  - Breathing-related sleep disorder [Unknown]
  - Encephalitis autoimmune [Recovering/Resolving]
  - Seizure [Recovering/Resolving]
  - Off label use [Unknown]
  - Therapeutic response unexpected [Fatal]
  - Drug ineffective [Unknown]

NARRATIVE: CASE EVENT DATE: 2017
